FAERS Safety Report 9767769 (Version 1)
Quarter: 2013Q4

REPORT INFORMATION
  Report Type: Spontaneous
  Country: US (occurrence: None)
  Receive Date: 20131213
  Receipt Date: 20131213
  Transmission Date: 20140711
  Serious: Yes (Other)
  Sender: FDA-Public Use
  Company Number: 2013SA025877

PATIENT
  Sex: Female

DRUGS (1)
  1. CAPSAICIN [Suspect]
     Indication: ARTHRALGIA
     Route: 061
     Dates: start: 20100430

REACTIONS (6)
  - Pain [None]
  - Blister [None]
  - Skin erosion [None]
  - Discomfort [None]
  - Burning sensation [None]
  - Erythema [None]
